FAERS Safety Report 10264121 (Version 2)
Quarter: 2014Q2

REPORT INFORMATION
  Report Type: Spontaneous
  Country: US (occurrence: US)
  Receive Date: 20140627
  Receipt Date: 20140630
  Transmission Date: 20141212
  Serious: No
  Sender: FDA-Public Use
  Company Number: US-009507513-1406USA012930

PATIENT
  Age: 25 Year
  Sex: Female

DRUGS (1)
  1. RAGWITEK [Suspect]
     Indication: SEASONAL ALLERGY
     Dosage: 12 AMB A 1-U/ONCE DAILY
     Route: 060
     Dates: start: 20140613, end: 20140613

REACTIONS (6)
  - Nasal congestion [Recovered/Resolved]
  - Chest discomfort [Recovered/Resolved]
  - Dyspnoea [Recovered/Resolved]
  - Cough [Recovered/Resolved]
  - Throat irritation [Recovered/Resolved]
  - Pruritus [Recovered/Resolved]
